FAERS Safety Report 4623144-8 (Version None)
Quarter: 2005Q1

REPORT INFORMATION
  Report Type: 
  Country: None (occurrence: None)
  Receive Date: 20050329
  Receipt Date: 20050329
  Transmission Date: 20050727
  Serious: Yes (Disabling)
  Sender: FDA-Public Use
  Company Number: None

PATIENT
  Age: 48 Year
  Sex: Female
  Weight: 113.3993 kg

DRUGS (1)
  1. FENTANYL (MYLAN) TRANSDERMAL SYSTE      75 MCG/HR      MYLAN PHARMECUT [Suspect]
     Indication: PAIN
     Dosage: EVERY THREE  DAYS    TRANSDERMAL
     Route: 062

REACTIONS (4)
  - DISCOMFORT [None]
  - PAIN [None]
  - PHARMACEUTICAL PRODUCT COMPLAINT [None]
  - SKIN DISORDER [None]
